FAERS Safety Report 11983289 (Version 1)
Quarter: 2016Q1

REPORT INFORMATION
  Report Type: Spontaneous
  Country: JP (occurrence: JP)
  Receive Date: 20160201
  Receipt Date: 20160201
  Transmission Date: 20160526
  Serious: Yes (Other)
  Sender: FDA-Public Use
  Company Number: JP-JNJFOC-20160123045

PATIENT
  Age: 10 Year
  Sex: Male

DRUGS (2)
  1. CONCERTA [Suspect]
     Active Substance: METHYLPHENIDATE HYDROCHLORIDE
     Indication: AUTISM SPECTRUM DISORDER
     Route: 048
     Dates: start: 201511
  2. CONCERTA [Suspect]
     Active Substance: METHYLPHENIDATE HYDROCHLORIDE
     Indication: AUTISM SPECTRUM DISORDER
     Route: 048
     Dates: end: 201511

REACTIONS (3)
  - Disturbance in attention [Not Recovered/Not Resolved]
  - Epilepsy [Recovered/Resolved]
  - Loss of consciousness [Recovered/Resolved]

NARRATIVE: CASE EVENT DATE: 201511
